FAERS Safety Report 14013775 (Version 1)
Quarter: 2017Q3

REPORT INFORMATION
  Report Type: Spontaneous
  Country: US (occurrence: US)
  Receive Date: 20170926
  Receipt Date: 20170926
  Transmission Date: 20171128
  Serious: No
  Sender: FDA-Public Use
  Company Number: US-ACTELION-A-US2017-159937

PATIENT
  Age: 39 Year
  Sex: Female
  Weight: 63.49 kg

DRUGS (2)
  1. TRACLEER [Suspect]
     Active Substance: BOSENTAN
     Indication: PULMONARY HYPERTENSION
     Dosage: 125 MG, BID
     Route: 048
  2. REMODULIN [Concomitant]
     Active Substance: TREPROSTINIL

REACTIONS (5)
  - Varicella [Unknown]
  - Rash pruritic [Unknown]
  - Subcutaneous abscess [Unknown]
  - Catheter site papule [Unknown]
  - Rash papular [Unknown]
